FAERS Safety Report 13559515 (Version 1)
Quarter: 2017Q2

REPORT INFORMATION
  Report Type: Spontaneous
  Country: JP (occurrence: JP)
  Receive Date: 20170518
  Receipt Date: 20170518
  Transmission Date: 20170830
  Serious: Yes (Hospitalization, Other)
  Sender: FDA-Public Use
  Company Number: JP-MYLANLABS-2017M1029846

PATIENT

DRUGS (2)
  1. VINORELBINE [Concomitant]
     Active Substance: VINORELBINE\VINORELBINE TARTRATE
     Indication: LUNG ADENOCARCINOMA STAGE III
     Dosage: 25MG/M2 WAS ADMINISTERED ON THE FIRST DAY
     Route: 065
  2. CISPLATIN. [Suspect]
     Active Substance: CISPLATIN
     Indication: LUNG ADENOCARCINOMA STAGE III
     Dosage: 80MG/M2 (ON 1ST DAY OF ADJUVANT CHEMOTHERAPY)
     Route: 065

REACTIONS (10)
  - Acute kidney injury [Unknown]
  - Systemic infection [Unknown]
  - Bone marrow failure [Unknown]
  - Vomiting [Unknown]
  - Diarrhoea [Unknown]
  - Hepatic enzyme increased [Unknown]
  - Neutrophil count increased [Unknown]
  - Multiple organ dysfunction syndrome [Unknown]
  - Hypoacusis [Unknown]
  - Platelet count increased [Unknown]
